FAERS Safety Report 4476576-5 (Version None)
Quarter: 2004Q4

REPORT INFORMATION
  Report Type: 
  Country: None (occurrence: None)
  Receive Date: 20041013
  Receipt Date: 20040903
  Transmission Date: 20050328
  Serious: Yes (Hospitalization)
  Sender: FDA-Public Use
  Company Number: MEDI-0001522

PATIENT
  Age: 2 Month
  Sex: Male
  Weight: 4.536 kg

DRUGS (1)
  1. SYNAGIS [Suspect]
     Indication: ANTIVIRAL PROPHYLAXIS
     Dosage: 57 MG, 1 IN 30 D, INTRA-MUSCULAR
     Route: 030
     Dates: start: 20031129, end: 20040115

REACTIONS (12)
  - ATELECTASIS [None]
  - CATHETER SITE NECROSIS [None]
  - COMA [None]
  - DECREASED APPETITE [None]
  - INFUSION SITE REACTION [None]
  - IRRITABILITY [None]
  - LUNG INFILTRATION [None]
  - PNEUMONIA [None]
  - RESPIRATORY ARREST [None]
  - RESPIRATORY FAILURE [None]
  - RESPIRATORY SYNCYTIAL VIRUS INFECTION [None]
  - SKIN GRAFT [None]
